FAERS Safety Report 7680134-9 (Version None)
Quarter: 2011Q3

REPORT INFORMATION
  Report Type: 
  Country: None (occurrence: None)
  Receive Date: 20110812
  Receipt Date: 20110804
  Transmission Date: 20111222
  Serious: Yes (Other)
  Sender: FDA-Public Use
  Company Number: FR-ROCHE-795138

PATIENT
  Sex: Male

DRUGS (2)
  1. INTERFERON [Concomitant]
  2. AVASTIN [Suspect]
     Route: 065

REACTIONS (1)
  - PNEUMOTHORAX [None]
